FAERS Safety Report 26207346 (Version 1)
Quarter: 2025Q4

REPORT INFORMATION
  Report Type: Spontaneous
  Country: US (occurrence: US)
  Receive Date: 20251229
  Receipt Date: 20251229
  Transmission Date: 20260118
  Serious: Yes (Life-Threatening, Other)
  Sender: RANBAXY
  Company Number: US-SUN PHARMACEUTICAL INDUSTRIES LTD-2025R1-544078

PATIENT
  Age: 78 Year
  Sex: Female

DRUGS (1)
  1. OCTREOTIDE [Suspect]
     Active Substance: OCTREOTIDE
     Indication: Left-sided portal hypertension
     Dosage: UNK
     Route: 065

REACTIONS (1)
  - Haemodynamic instability [Recovering/Resolving]
